FAERS Safety Report 6078474-2 (Version None)
Quarter: 2009Q1

REPORT INFORMATION
  Report Type: 
  Country: None (occurrence: None)
  Receive Date: 20090212
  Receipt Date: 20090212
  Transmission Date: 20090719
  Serious: Yes (Other)
  Sender: FDA-Public Use
  Company Number: None

PATIENT
  Age: 35 Year
  Sex: Female
  Weight: 68.0396 kg

DRUGS (1)
  1. MEDROXYPROGESTERONE [Suspect]
     Indication: CONTRACEPTION
     Dosage: ONE INJECTION EVERY 3 MONTHS
     Dates: start: 20080806, end: 20081006

REACTIONS (1)
  - SUPPRESSED LACTATION [None]
